FAERS Safety Report 6080533-5 (Version None)
Quarter: 2009Q1

REPORT INFORMATION
  Report Type: 
  Country: None (occurrence: None)
  Receive Date: 20090217
  Receipt Date: 20090211
  Transmission Date: 20090719
  Serious: Yes (Other)
  Sender: FDA-Public Use
  Company Number: A0767960A

PATIENT
  Age: 66 Year
  Sex: Female

DRUGS (9)
  1. TYKERB [Suspect]
     Indication: BREAST CANCER
     Dosage: 1500MG PER DAY
     Route: 048
     Dates: start: 20080901
  2. XELODA [Suspect]
     Indication: DRUG USE FOR UNKNOWN INDICATION
  3. LEVOTHYROXINE SODIUM [Concomitant]
  4. ENALAPRIL MALEATE AND HYDROCHLOROTHIAZIDE [Concomitant]
  5. SIMVASTATIN [Concomitant]
  6. TRICOR [Concomitant]
  7. FISH OIL [Concomitant]
  8. VITAMIN [Concomitant]
  9. ACTONEL [Concomitant]

REACTIONS (6)
  - DIARRHOEA [None]
  - FATIGUE [None]
  - PALMAR-PLANTAR ERYTHRODYSAESTHESIA SYNDROME [None]
  - PRURITUS [None]
  - RASH [None]
  - STOMATITIS [None]
